FAERS Safety Report 5939175-1 (Version None)
Quarter: 2008Q4

REPORT INFORMATION
  Report Type: 
  Country: None (occurrence: None)
  Receive Date: 20081103
  Receipt Date: 20081022
  Transmission Date: 20090506
  Serious: Yes (Hospitalization)
  Sender: FDA-Public Use
  Company Number: ES-PFIZER INC-2007018169

PATIENT
  Age: 82 Year
  Sex: Female
  Weight: 85 kg

DRUGS (6)
  1. NEURONTIN [Suspect]
     Indication: BACK PAIN
     Route: 048
     Dates: start: 20040101
  2. MORPHINE SULFATE [Interacting]
     Indication: BACK PAIN
     Route: 048
     Dates: start: 20061213
  3. PREVENCOR [Concomitant]
     Indication: BACK PAIN
     Dosage: DAILY DOSE:20MG
     Route: 048
  4. OMEPRAZOLE [Concomitant]
     Route: 048
  5. ACOVIL [Concomitant]
     Indication: HYPERTENSION
     Dosage: DAILY DOSE:10MG
     Route: 048
  6. NOVOLOG MIX 70/30 [Concomitant]
     Dosage: TEXT:39 UT
     Route: 058

REACTIONS (7)
  - ACUTE PSYCHOSIS [None]
  - CHOREA [None]
  - CONFUSIONAL STATE [None]
  - CREATININE RENAL CLEARANCE DECREASED [None]
  - DRUG INTERACTION [None]
  - HALLUCINATION [None]
  - SOMNOLENCE [None]
